FAERS Safety Report 4301122-6 (Version None)
Quarter: 2004Q1

REPORT INFORMATION
  Report Type: 
  Country: None (occurrence: None)
  Receive Date: 20040219
  Receipt Date: 20040209
  Transmission Date: 20041129
  Serious: Yes (Hospitalization)
  Sender: FDA-Public Use
  Company Number: 7422

PATIENT
  Age: 64 Year
  Sex: Female

DRUGS (4)
  1. LEFLUNOMIDE [Suspect]
     Indication: RHEUMATOID ARTHRITIS
     Dosage: 20 MG, PO
     Route: 048
     Dates: start: 20020914, end: 20030121
  2. METHOTREXATE [Suspect]
     Indication: RHEUMATOID ARTHRITIS
     Dosage: 20 MG WEEKLY PO
     Route: 048
     Dates: start: 20020501, end: 20030101
  3. FOLIC ACID [Concomitant]
  4. PREDNISONE [Concomitant]

REACTIONS (13)
  - AGEUSIA [None]
  - ANOREXIA [None]
  - CHILLS [None]
  - COUGH [None]
  - DYSPNOEA [None]
  - HYPERAESTHESIA [None]
  - HYPERHIDROSIS [None]
  - LUNG DISORDER [None]
  - NAUSEA [None]
  - PNEUMONITIS [None]
  - PYREXIA [None]
  - SCAR [None]
  - TOTAL LUNG CAPACITY DECREASED [None]
